FAERS Safety Report 7077618-3 (Version None)
Quarter: 2010Q4

REPORT INFORMATION
  Report Type: 
  Country: None (occurrence: None)
  Receive Date: 20101101
  Receipt Date: 20101019
  Transmission Date: 20110411
  Serious: Yes (Death, Other)
  Sender: FDA-Public Use
  Company Number: FR-PURDUE-USA-2010-0044588

PATIENT
  Sex: Female
  Weight: 78 kg

DRUGS (8)
  1. TRAMADOL HCL [Suspect]
     Indication: PRODUCT USED FOR UNKNOWN INDICATION
     Dosage: 200 MG, BID
  2. FENTANYL CITRATE [Suspect]
     Indication: CANCER PAIN
     Dosage: 12.5 UG, UNK
     Route: 062
  3. FENTANYL CITRATE [Suspect]
     Dosage: 25 UG, Q1H
     Dates: start: 20100601
  4. FENTANYL CITRATE [Suspect]
     Dosage: 50 UG, UNK
     Route: 062
     Dates: start: 20100601, end: 20100610
  5. DURAGESIC-100 [Suspect]
     Indication: CANCER PAIN
     Dosage: 12.5 MCG, Q1H
     Route: 062
  6. DURAGESIC-100 [Suspect]
     Dosage: 25 MCG, Q1H
  7. IXPRIM [Concomitant]
     Indication: PRODUCT USED FOR UNKNOWN INDICATION
  8. PARACETAMOL [Concomitant]
     Indication: PRODUCT USED FOR UNKNOWN INDICATION

REACTIONS (3)
  - CONFUSIONAL STATE [None]
  - MALIGNANT NEOPLASM PROGRESSION [None]
  - SPEECH DISORDER [None]
